FAERS Safety Report 19030843 (Version 1)
Quarter: 2021Q1

REPORT INFORMATION
  Report Type: Spontaneous
  Country: CN (occurrence: CN)
  Receive Date: 20210319
  Receipt Date: 20210319
  Transmission Date: 20210420
  Serious: Yes (Other)
  Sender: FDA-Public Use
  Company Number: CN-009507513-2103CHN003946

PATIENT
  Age: 64 Year
  Sex: Female
  Weight: 60 kg

DRUGS (3)
  1. TIENAM [Suspect]
     Active Substance: CILASTATIN SODIUM\IMIPENEM
     Dosage: 0.5 GRAM, Q12H
     Route: 041
     Dates: start: 20210203, end: 20210207
  2. TIENAM [Suspect]
     Active Substance: CILASTATIN SODIUM\IMIPENEM
     Indication: STAPHYLOCOCCAL INFECTION
     Dosage: 1 GRAM, Q8H
     Route: 041
     Dates: start: 20210129, end: 20210203
  3. TIENAM [Suspect]
     Active Substance: CILASTATIN SODIUM\IMIPENEM
     Dosage: 1 GRAM, Q12H
     Route: 041
     Dates: start: 20210208, end: 20210219

REACTIONS (3)
  - Renal impairment [Unknown]
  - Septic encephalopathy [Unknown]
  - Myoclonus [Recovered/Resolved]

NARRATIVE: CASE EVENT DATE: 2021
